FAERS Safety Report 7746861-X (Version None)
Quarter: 2011Q3

REPORT INFORMATION
  Report Type: 
  Country: None (occurrence: None)
  Receive Date: 20110913
  Receipt Date: 20110825
  Transmission Date: 20111222
  Serious: Yes (Hospitalization)
  Sender: FDA-Public Use
  Company Number: GB-CEPHALON-2010003918

PATIENT
  Sex: Female
  Weight: 66 kg

DRUGS (11)
  1. RITUXIMAB [Suspect]
     Route: 042
     Dates: start: 20100608, end: 20100707
  2. COTRIM [Concomitant]
     Dates: start: 20100619
  3. LANTUS [Concomitant]
  4. BENDAMUSTINE HCL [Suspect]
     Route: 042
     Dates: start: 20100608, end: 20100707
  5. ACYCLOVIR [Concomitant]
     Dates: start: 20100609
  6. AMLODIPINE [Concomitant]
  7. ATENOLOL [Concomitant]
  8. HUMALOG [Concomitant]
  9. METFORMIN HCL [Suspect]
     Dates: end: 20100728
  10. CAPTOPRIL [Concomitant]
     Dates: start: 20090101
  11. DOMPERIDONE [Concomitant]
     Dates: start: 20100608

REACTIONS (5)
  - ANORECTAL DISCOMFORT [None]
  - LIVER FUNCTION TEST ABNORMAL [None]
  - DEHYDRATION [None]
  - CHOLESTASIS [None]
  - CONSTIPATION [None]
